FAERS Safety Report 10126334 (Version 2)
Quarter: 2015Q1

REPORT INFORMATION
  Report Type: Other
  Country: US (occurrence: US)
  Receive Date: 20140427
  Receipt Date: 20150220
  Transmission Date: 20150720
  Serious: Yes (Hospitalization, Other)
  Sender: FDA-Public Use
  Company Number: US-GSKPPD-2014GSK029570

PATIENT
  Age: 75 Year
  Sex: Male

DRUGS (5)
  1. ZOCOR [Concomitant]
     Active Substance: SIMVASTATIN
  2. VASOTEC [Concomitant]
     Active Substance: ENALAPRIL MALEATE
  3. AVANDIA [Suspect]
     Active Substance: ROSIGLITAZONE MALEATE
     Indication: DIABETES MELLITUS
     Dosage: AVANDIA WAS NOT LISTED AMONG THE PATIENTS RECORDS REVIEWED.
     Route: 048
  4. ECOTRIN [Concomitant]
     Active Substance: ASPIRIN
  5. TOPROL XL [Concomitant]
     Active Substance: METOPROLOL SUCCINATE

REACTIONS (2)
  - Myocardial infarction [Recovered/Resolved]
  - Cardiac failure congestive [Recovered/Resolved]

NARRATIVE: CASE EVENT DATE: 20060926
